FAERS Safety Report 17292439 (Version 1)
Quarter: 2020Q1

REPORT INFORMATION
  Report Type: Spontaneous
  Country: US (occurrence: US)
  Receive Date: 20191231
  Receipt Date: 20191231
  Transmission Date: 20200409
  Serious: Yes (Hospitalization, Disabling)
  Sender: FDA-Public Use
  Company Number: None

PATIENT
  Age: 78 Year
  Sex: Male
  Weight: 74.84 kg

DRUGS (2)
  1. LEVAQUIN [Suspect]
     Active Substance: LEVOFLOXACIN
     Indication: KLEBSIELLA INFECTION
     Dosage: ?          QUANTITY:750 ML-5 PINTS/TAB;?
     Route: 048
     Dates: start: 20190704, end: 20190714
  2. LEVAQUIN [Suspect]
     Active Substance: LEVOFLOXACIN
     Indication: MORGANELLA INFECTION
     Dosage: ?          QUANTITY:750 ML-5 PINTS/TAB;?
     Route: 048
     Dates: start: 20190704, end: 20190714

REACTIONS (1)
  - Gait inability [None]

NARRATIVE: CASE EVENT DATE: 20190704
